FAERS Safety Report 25688283 (Version 1)
Quarter: 2025Q3

REPORT INFORMATION
  Report Type: Spontaneous
  Country: EU (occurrence: EU)
  Receive Date: 20250818
  Receipt Date: 20250818
  Transmission Date: 20251020
  Serious: Yes (Death)
  Sender: AMGEN
  Company Number: EU-AMGEN-FRASP2025087228

PATIENT
  Sex: Female

DRUGS (2)
  1. ARANESP [Suspect]
     Active Substance: DARBEPOETIN ALFA
     Indication: Product used for unknown indication
     Route: 065
  2. ARANESP [Suspect]
     Active Substance: DARBEPOETIN ALFA
     Route: 065

REACTIONS (2)
  - Death [Fatal]
  - Device difficult to use [Unknown]

NARRATIVE: CASE EVENT DATE: 20250101
